FAERS Safety Report 15014715 (Version 1)
Quarter: 2018Q2

REPORT INFORMATION
  Report Type: Spontaneous
  Country: DE (occurrence: DE)
  Receive Date: 20180615
  Receipt Date: 20180615
  Transmission Date: 20180711
  Serious: Yes (Other)
  Sender: FDA-Public Use
  Company Number: DE-TEVA-2018-DE-907631

PATIENT
  Sex: Male

DRUGS (3)
  1. ATORVASTATIN 20MG [Suspect]
     Active Substance: ATORVASTATIN
     Route: 065
  2. ONGLYZA [Interacting]
     Active Substance: SAXAGLIPTIN HYDROCHLORIDE
     Indication: DIABETES MELLITUS
     Route: 065
  3. SIOFOR [Interacting]
     Active Substance: METFORMIN HYDROCHLORIDE
     Indication: DIABETES MELLITUS
     Route: 065

REACTIONS (4)
  - Drug interaction [Unknown]
  - Circulatory collapse [Unknown]
  - Diarrhoea [Unknown]
  - Dizziness [Unknown]
